FAERS Safety Report 21390605 (Version 2)
Quarter: 2022Q4

REPORT INFORMATION
  Report Type: Spontaneous
  Country: US (occurrence: US)
  Receive Date: 20220929
  Receipt Date: 20221014
  Transmission Date: 20230113
  Serious: Yes (Hospitalization, Other)
  Sender: FDA-Public Use
  Company Number: US-TEVA-2022-US-2076347

PATIENT
  Age: 9 Year
  Sex: Male

DRUGS (4)
  1. PERMETHRIN [Suspect]
     Active Substance: PERMETHRIN
     Indication: Folliculitis
     Dosage: PERMETHRIN: 5 %
     Route: 061
  2. CEPHALEXIN [Concomitant]
     Active Substance: CEPHALEXIN
     Indication: Corynebacterium infection
     Dosage: 50 MG/KG DAILY;
     Route: 048
  3. CLINDAMYCIN [Concomitant]
     Active Substance: CLINDAMYCIN
     Indication: Corynebacterium infection
     Dosage: 25 MG/KG DAILY;
     Route: 042
  4. MUPIROCIN [Concomitant]
     Active Substance: MUPIROCIN
     Indication: Corynebacterium infection
     Route: 061

REACTIONS (1)
  - Burning sensation [Unknown]
